FAERS Safety Report 25062809 (Version 4)
Quarter: 2025Q2

REPORT INFORMATION
  Report Type: Spontaneous
  Country: US (occurrence: US)
  Receive Date: 20250311
  Receipt Date: 20250513
  Transmission Date: 20250716
  Serious: Yes (Other)
  Sender: BIOVITRUM
  Company Number: US-BIOVITRUM-2025-US-003181

PATIENT
  Age: 73 Year
  Sex: Male

DRUGS (2)
  1. VONJO [Suspect]
     Active Substance: PACRITINIB
     Indication: Myelofibrosis
     Route: 048
     Dates: start: 20250212
  2. VONJO [Suspect]
     Active Substance: PACRITINIB
     Route: 048
     Dates: start: 20250211

REACTIONS (4)
  - Diarrhoea [Unknown]
  - Platelet count decreased [Not Recovered/Not Resolved]
  - Intentional product misuse [Not Recovered/Not Resolved]
  - Hypersplenism [Unknown]
